FAERS Safety Report 9197425 (Version 1)
Quarter: 2013Q1

REPORT INFORMATION
  Report Type: Spontaneous
  Country: US (occurrence: US)
  Receive Date: 20130328
  Receipt Date: 20130328
  Transmission Date: 20140127
  Serious: Yes (Other)
  Sender: FDA-Public Use
  Company Number: US-PFIZER INC-2013096072

PATIENT
  Sex: 0

DRUGS (2)
  1. CYTARABINE [Suspect]
     Route: 064
  2. THIOGUANINE [Suspect]
     Route: 064

REACTIONS (2)
  - Autosomal chromosome anomaly [Unknown]
  - Maternal exposure timing unspecified [Unknown]
